FAERS Safety Report 24248859 (Version 1)
Quarter: 2024Q3

REPORT INFORMATION
  Report Type: Spontaneous
  Country: GB (occurrence: GB)
  Receive Date: 20240826
  Receipt Date: 20240826
  Transmission Date: 20241017
  Serious: Yes (Other)
  Sender: MYLAN
  Company Number: None

PATIENT
  Age: 59 Year
  Sex: Female

DRUGS (12)
  1. FAMOTIDINE [Suspect]
     Active Substance: FAMOTIDINE
     Indication: Product used for unknown indication
     Dosage: UNK
     Route: 065
  2. CHOLECALCIFEROL [Concomitant]
     Active Substance: CHOLECALCIFEROL
     Dosage: 1 DOSAGE FORM, BID (ONE TO BETAKEN TWICE A DAY - MORNING AND NIGHT ,56 TABLET)
     Route: 065
  3. BECLOMETHASONE DIPROPIONATE\FORMOTEROL FUMARATE\GLYCOPYRROLATE [Concomitant]
     Active Substance: BECLOMETHASONE DIPROPIONATE\FORMOTEROL FUMARATE\GLYCOPYRROLATE
     Dosage: UNK, BID (87MCG/DOSE / 5MCG/DOSE / 9MCG/DOSE INHALER, 2 PUFF TO BE INHALED TWICE A DAY,1 X 120 DOSE)
     Route: 055
  4. LACTULOSE [Concomitant]
     Active Substance: LACTULOSE
     Indication: Constipation
     Dosage: UNK, (3.1-3.7G/5ML ORAL SOLUTION, TWO 5ML SPOONFULS TO BE TAKEN TWICE DAILYWHEN REQUIRED,500 ML)
     Route: 065
  5. ACETAMINOPHEN [Concomitant]
     Active Substance: ACETAMINOPHEN
     Indication: Pain
     Dosage: UNK, (500MG TABLETS, ONE TO BE TAKEN EVERY 4-6 HOURS UP TO FOUR TIMES ADAY WHEN REQUIRED,50 TABLET)
     Route: 065
  6. ALBUTEROL [Concomitant]
     Active Substance: ALBUTEROL
     Dosage: 100 UNK
     Route: 055
  7. LANOLIN\LIGHT MINERAL OIL\PARAFFIN [Concomitant]
     Active Substance: LANOLIN\LIGHT MINERAL OIL\PARAFFIN
     Indication: Dry skin
     Dosage: UNK (APPLY UP TO FOUR TIMES A DAY WHEN REQUIRED,500 GRAM)
     Route: 065
  8. POTASSIUM BICARBONATE\SODIUM ALGINATE [Concomitant]
     Active Substance: POTASSIUM BICARBONATE\SODIUM ALGINATE
     Dosage: UNK, BID (ONE OR TWO 5ML SPOONFULS TO BE TAKEN AFTER MEALS AND AT BEDTIME,500 ML)
     Route: 065
  9. MIRTAZAPINE [Concomitant]
     Active Substance: MIRTAZAPINE
     Dosage: 1 DOSAGE FORM, PM (15MG TABLETS, ONE TO BE TAKEN AT NIGHT. AS PER DISCHARGE 23.6.23,28TABLET)
     Route: 065
  10. CHOLECALCIFEROL [Concomitant]
     Active Substance: CHOLECALCIFEROL
     Dosage: 1 DOSAGE FORM, BID (ONE TO BETAKEN TWICE A DAY - MORNING AND NIGHT ,56 TABLET)
     Route: 065
  11. SERTRALINE [Concomitant]
     Active Substance: SERTRALINE HYDROCHLORIDE
     Dosage: 25 MILLIGRAM, QD (50MG TABLETS, TAKE HALF A TABLET TO BE TAKEN EACH DAY,28 TABLET)
     Route: 065
  12. AMITRIPTYLINE [Concomitant]
     Active Substance: AMITRIPTYLINE
     Dosage: 1 DOSAGE FORM, BID (ONE TO BE TAKEN IN THE MORNING AND ONE AT NIGHT,56 TABLET)
     Route: 065

REACTIONS (2)
  - Delirium [Recovered/Resolved]
  - Hallucination [Recovered/Resolved]
